FAERS Safety Report 24029496 (Version 4)
Quarter: 2024Q4

REPORT INFORMATION
  Report Type: Spontaneous
  Country: JP (occurrence: JP)
  Receive Date: 20240628
  Receipt Date: 20241223
  Transmission Date: 20250115
  Serious: Yes (Hospitalization)
  Sender: AMGEN
  Company Number: JP-AMGEN-JPNSP2024125141

PATIENT
  Age: 67 Year
  Sex: Female
  Weight: 45 kg

DRUGS (13)
  1. EVENITY [Suspect]
     Active Substance: ROMOSOZUMAB-AQQG
     Indication: Osteoporosis
     Dosage: 210 MILLIGRAM, QMO
     Route: 058
     Dates: start: 20230113, end: 20240126
  2. EVENITY [Suspect]
     Active Substance: ROMOSOZUMAB-AQQG
     Indication: Lumbar vertebral fracture
  3. DENOSUMAB [Suspect]
     Active Substance: DENOSUMAB
     Indication: Osteoporosis
     Dosage: 1A, Q6MO
     Route: 065
     Dates: start: 20240301
  4. MAGNESIUM OXIDE [Concomitant]
     Active Substance: MAGNESIUM OXIDE
     Indication: Constipation
     Dosage: 1 DOSAGE FORM, BID
  5. NIFEDIPINE [Concomitant]
     Active Substance: NIFEDIPINE
     Indication: Hypertension
     Dosage: 0.5 DOSAGE FORM, BID
  6. FAMOTIDINE [Concomitant]
     Active Substance: FAMOTIDINE
     Indication: Gastritis
     Dosage: 1 DOSAGE FORM, QD
  7. OLMESARTAN [Concomitant]
     Active Substance: OLMESARTAN
     Indication: Hypertension
     Dosage: 1 DOSAGE FORM, QD
  8. ATORVASTATIN [Concomitant]
     Active Substance: ATORVASTATIN
     Indication: Hyperlipidaemia
     Dosage: 1 DOSAGE FORM, QD
  9. PEMAFIBRATE [Concomitant]
     Active Substance: PEMAFIBRATE
     Indication: Hyperlipidaemia
     Dosage: 1 DOSAGE FORM, QD
  10. ELDECALCITOL [Concomitant]
     Active Substance: ELDECALCITOL
     Indication: Lumbar vertebral fracture
     Dosage: 1 DOSAGE FORM, QD
     Dates: start: 20230113
  11. ELDECALCITOL [Concomitant]
     Active Substance: ELDECALCITOL
     Indication: Osteoporosis
  12. EDARAVONE [Concomitant]
     Active Substance: EDARAVONE
     Dosage: 30 MILLIGRAM
     Dates: start: 20240318, end: 20240325
  13. OZAGREL SODIUM [Concomitant]
     Active Substance: OZAGREL SODIUM
     Dosage: 80 MILLIGRAM
     Dates: start: 20240318, end: 20240325

REACTIONS (1)
  - Cerebral infarction [Unknown]

NARRATIVE: CASE EVENT DATE: 20240318
